FAERS Safety Report 9200822 (Version 1)
Quarter: 2013Q1

REPORT INFORMATION
  Report Type: Spontaneous
  Country: US (occurrence: None)
  Receive Date: 20130328
  Receipt Date: 20130328
  Transmission Date: 20140127
  Serious: Yes (Life-Threatening, Hospitalization)
  Sender: FDA-Public Use
  Company Number: None

PATIENT
  Age: 60 Year
  Sex: Male
  Weight: 74.84 kg

DRUGS (1)
  1. CIALIS 10MG LILLY [Suspect]
     Indication: ERECTILE DYSFUNCTION
     Dosage: 1 PO PRN PO
     Route: 048
     Dates: start: 20021101, end: 20101127

REACTIONS (7)
  - Loss of consciousness [None]
  - Fall [None]
  - Rib fracture [None]
  - Traumatic lung injury [None]
  - Pneumothorax [None]
  - Clavicle fracture [None]
  - Blood pressure decreased [None]
